FAERS Safety Report 8948415 (Version 1)
Quarter: 2012Q4

REPORT INFORMATION
  Report Type: 
  Country: BR (occurrence: BR)
  Receive Date: 20121206
  Receipt Date: 20121206
  Transmission Date: 20130627
  Serious: Yes (Other)
  Sender: FDA-Public Use
  Company Number: PHHY2012BR111692

PATIENT
  Sex: Female

DRUGS (3)
  1. TEGRETOL [Suspect]
     Dosage: 200 mg, UNK
     Route: 048
     Dates: end: 201111
  2. TEGRETOL [Suspect]
     Dosage: 4 DF (1 DF in morning, 1DF in afternoon, tablets at night), daily
     Route: 048
     Dates: start: 201111
  3. PHENYTOIN [Suspect]
     Indication: CONVULSION
     Dosage: UNK UKN, UNK
     Dates: end: 201111

REACTIONS (1)
  - Convulsion [Unknown]
